FAERS Safety Report 8117286-2 (Version None)
Quarter: 2012Q1

REPORT INFORMATION
  Report Type: 
  Country: None (occurrence: None)
  Receive Date: 20120206
  Receipt Date: 20120202
  Transmission Date: 20120608
  Serious: Yes (Life-Threatening, Hospitalization)
  Sender: FDA-Public Use
  Company Number: DK-ABBOTT-12P-044-0900881-00

PATIENT
  Sex: Male

DRUGS (1)
  1. HUMIRA [Suspect]
     Indication: SPONDYLITIS
     Dates: start: 20100212

REACTIONS (2)
  - CONVULSION [None]
  - LEUKOENCEPHALOPATHY [None]
